FAERS Safety Report 7882938-6 (Version None)
Quarter: 2011Q4

REPORT INFORMATION
  Report Type: 
  Country: None (occurrence: None)
  Receive Date: 20111101
  Receipt Date: 20110622
  Transmission Date: 20120403
  Serious: No
  Sender: FDA-Public Use
  Company Number: US-AMGEN-USASP2011032107

PATIENT
  Age: 59 Year
  Sex: Female

DRUGS (1)
  1. ENBREL [Suspect]
     Indication: RHEUMATOID ARTHRITIS
     Dosage: 50 MG, QWK
     Dates: start: 20110502

REACTIONS (9)
  - CONTUSION [None]
  - HOT FLUSH [None]
  - COUGH [None]
  - SNEEZING [None]
  - INJECTION SITE PRURITUS [None]
  - INJECTION SITE PAIN [None]
  - MALAISE [None]
  - INJECTION SITE ERYTHEMA [None]
  - INJECTION SITE WARMTH [None]
